FAERS Safety Report 13375772 (Version 1)
Quarter: 2017Q1

REPORT INFORMATION
  Report Type: Spontaneous
  Country: US (occurrence: US)
  Receive Date: 20170328
  Receipt Date: 20170328
  Transmission Date: 20170429
  Serious: No
  Sender: FDA-Public Use
  Company Number: US-ALKABELLO-2017AA000719

PATIENT
  Age: 46 Year
  Sex: Male
  Weight: 105.7 kg

DRUGS (3)
  1. GRASTEK [Suspect]
     Active Substance: PHLEUM PRATENSE POLLEN
     Indication: SEASONAL ALLERGY
     Dosage: DOSE UNIT:2800 BIOEQUIVALENT ALLERGENIC UNIT (S)
     Dates: start: 20170220, end: 20170221
  2. GRASTEK [Suspect]
     Active Substance: PHLEUM PRATENSE POLLEN
     Indication: SEASONAL ALLERGY
     Dosage: DOSE UNIT:2800 BIOEQUIVALENT ALLERGENIC UNIT (S)
     Dates: start: 20170220, end: 20170221
  3. GRASTEK [Suspect]
     Active Substance: PHLEUM PRATENSE POLLEN
     Indication: SEASONAL ALLERGY
     Dosage: DOSE UNIT:2800 BIOEQUIVALENT ALLERGENIC UNIT (S)
     Dates: start: 20170227

REACTIONS (7)
  - Feeling hot [Recovered/Resolved]
  - Ear pruritus [Unknown]
  - Throat irritation [Recovered/Resolved]
  - Oral pruritus [Unknown]
  - Pruritus generalised [Recovered/Resolved]
  - Generalised erythema [Recovered/Resolved]
  - Oral pruritus [Unknown]

NARRATIVE: CASE EVENT DATE: 20170220
